FAERS Safety Report 8737924 (Version 2)
Quarter: 2012Q4

REPORT INFORMATION
  Report Type: 
  Country: AR (occurrence: AR)
  Receive Date: 20120823
  Receipt Date: 20120903
  Transmission Date: 20130627
  Serious: Yes (Hospitalization, Other)
  Sender: FDA-Public Use
  Company Number: AR-AMGEN-ARGSP2012052710

PATIENT
  Age: 43 Year
  Sex: Female

DRUGS (4)
  1. ENBREL [Suspect]
     Indication: RHEUMATOID ARTHRITIS
     Dosage: 50 mg, every 15 days
     Route: 058
     Dates: start: 20070303, end: 201203
  2. METHOTREXATE [Suspect]
     Dosage: UNK
  3. FOLIC ACID [Concomitant]
     Dosage: UNK
  4. DICLOFENAC [Concomitant]
     Dosage: UNK

REACTIONS (4)
  - White blood cell count increased [Recovered/Resolved]
  - Application site pain [Recovered/Resolved]
  - Immunosuppression [Recovered/Resolved]
  - Bronchopneumonia [Recovered/Resolved]
